FAERS Safety Report 23564802 (Version 2)
Quarter: 2024Q1

REPORT INFORMATION
  Report Type: Spontaneous
  Country: US (occurrence: US)
  Receive Date: 20240226
  Receipt Date: 20240308
  Transmission Date: 20240410
  Serious: No
  Sender: FDA-Public Use
  Company Number: US-AMGEN-USASP2024037759

PATIENT
  Age: 63 Year
  Sex: Female
  Weight: 43.537 kg

DRUGS (11)
  1. MVASI [Suspect]
     Active Substance: BEVACIZUMAB-AWWB
     Indication: Product used for unknown indication
     Dosage: 225 MILLIGRAM, Q2WK
     Route: 042
     Dates: start: 20230731
  2. MVASI [Suspect]
     Active Substance: BEVACIZUMAB-AWWB
     Dosage: 250 MILLIGRAM, Q2WK
     Route: 042
     Dates: start: 20231010
  3. MVASI [Suspect]
     Active Substance: BEVACIZUMAB-AWWB
     Dosage: 225 MILLIGRAM, Q2WK
     Route: 042
     Dates: start: 20231024
  4. UDENYCA [Concomitant]
     Active Substance: PEGFILGRASTIM-CBQV
     Dosage: 6 MILLIGRAM/0.6 MILLILITER, Q2WK
     Route: 058
     Dates: start: 20230427
  5. ADRUCIL [Concomitant]
     Active Substance: FLUOROURACIL
     Dosage: 575 MILLIGRAM, 400 MG/M2
     Route: 042
     Dates: start: 20230425
  6. ADRUCIL [Concomitant]
     Active Substance: FLUOROURACIL
     Dosage: 3375 MILLIGRAM IN SODIUM CHLORIDE 0.9%,92 ML CADD INFUSION PUMP
     Route: 042
     Dates: start: 20230425
  7. ADRUCIL [Concomitant]
     Active Substance: FLUOROURACIL
     Dosage: 550 MILLIGRAM
     Route: 042
     Dates: start: 20230815
  8. LEUCOVORIN [Concomitant]
     Active Substance: LEUCOVORIN\LEUCOVORIN CALCIUM
     Dosage: 5380 MILLIGRAM IN DEXTROSE (D5W), Q2WK
     Route: 042
     Dates: start: 20230425
  9. CAMPTOSAR [Concomitant]
     Active Substance: IRINOTECAN HYDROCHLORIDE
     Dosage: 260 MILLIGRAM, ONCE 11 OF 11 CYCLES
     Route: 042
     Dates: start: 20230731
  10. CAMPTOSAR [Concomitant]
     Active Substance: IRINOTECAN HYDROCHLORIDE
     Dosage: 260 MILLIGRAM, ONCE 11 OF 11 CYCLES
     Route: 042
     Dates: start: 20231128
  11. AVASTIN [Concomitant]
     Active Substance: BEVACIZUMAB
     Dosage: UNK UNK, Q2WK
     Dates: start: 20230731

REACTIONS (3)
  - Pain in jaw [Unknown]
  - Swelling face [Unknown]
  - Tooth infection [Unknown]

NARRATIVE: CASE EVENT DATE: 20240110
